FAERS Safety Report 7675567-0 (Version None)
Quarter: 2011Q3

REPORT INFORMATION
  Report Type: 
  Country: None (occurrence: None)
  Receive Date: 20110810
  Receipt Date: 20110808
  Transmission Date: 20111222
  Serious: Yes (Other)
  Sender: FDA-Public Use
  Company Number: US-CEPHALON-2010001633

PATIENT
  Sex: Male
  Weight: 73 kg

DRUGS (3)
  1. PROVIGIL [Suspect]
     Indication: DEPRESSION
     Route: 048
     Dates: start: 20050101
  2. METFORMIN HCL [Concomitant]
     Indication: DIABETES MELLITUS
     Route: 048
     Dates: start: 20050101
  3. AVAPRO [Concomitant]
     Indication: HYPERTENSION
     Route: 048

REACTIONS (3)
  - LEFT VENTRICULAR HYPERTROPHY [None]
  - DRUG TOLERANCE DECREASED [None]
  - THERAPEUTIC RESPONSE UNEXPECTED [None]
